FAERS Safety Report 17820176 (Version 2)
Quarter: 2020Q2

REPORT INFORMATION
  Report Type: Report from Study
  Country: None (occurrence: US)
  Receive Date: 20200525
  Receipt Date: 20200623
  Transmission Date: 20200714
  Serious: Yes (Other)
  Sender: FDA-Public Use
  Company Number: US-ABBVIE-20K-163-3413417-00

PATIENT
  Sex: Female

DRUGS (1)
  1. HUMIRA [Suspect]
     Active Substance: ADALIMUMAB
     Indication: CROHN^S DISEASE
     Dosage: HUMIRA CF PEN
     Route: 058

REACTIONS (10)
  - Systemic lupus erythematosus [Unknown]
  - Crohn^s disease [Unknown]
  - Polyarthritis [Unknown]
  - Therapeutic product effect delayed [Recovering/Resolving]
  - Pain [Unknown]
  - Memory impairment [Not Recovered/Not Resolved]
  - Inflammation [Unknown]
  - Iron deficiency [Unknown]
  - Fibromyalgia [Unknown]
  - Osteoarthritis [Unknown]

NARRATIVE: CASE EVENT DATE: 2020
